FAERS Safety Report 8505101-4 (Version None)
Quarter: 2012Q3

REPORT INFORMATION
  Report Type: 
  Country: None (occurrence: None)
  Receive Date: 20120712
  Receipt Date: 20120709
  Transmission Date: 20120928
  Serious: Yes (Hospitalization)
  Sender: FDA-Public Use
  Company Number: PHHY2011US30730

PATIENT
  Sex: Male

DRUGS (4)
  1. CYMBALTA [Concomitant]
     Dosage: 60 MG, QD
  2. CLONAZEPAM [Concomitant]
     Indication: ANXIETY
     Dosage: 1 MG, BID
  3. EXTAVIA [Suspect]
     Indication: MULTIPLE SCLEROSIS
     Dosage: 0.25 MG, QOD
     Route: 058
     Dates: start: 20100901
  4. VITAMIN D [Concomitant]
     Dosage: 50000 IU, QIW
     Dates: start: 20110101

REACTIONS (7)
  - INFLUENZA LIKE ILLNESS [None]
  - INJECTION SITE HAEMATOMA [None]
  - FATIGUE [None]
  - PYREXIA [None]
  - MALIGNANT MELANOMA [None]
  - INJECTION SITE ERYTHEMA [None]
  - INJECTION SITE PAIN [None]
